FAERS Safety Report 5655693-8 (Version None)
Quarter: 2008Q1

REPORT INFORMATION
  Report Type: 
  Country: None (occurrence: None)
  Receive Date: 20080307
  Receipt Date: 20080229
  Transmission Date: 20080703
  Serious: No
  Sender: FDA-Public Use
  Company Number: US-BAXTER-2008BH001797

PATIENT
  Age: 51 Year
  Sex: Female

DRUGS (4)
  1. HEPARIN SODIUM [Suspect]
     Indication: INTRAVENOUS CATHETER MANAGEMENT
     Dosage: DOSE UNIT:UNKNOWN
     Route: 042
     Dates: start: 20071201
  2. ROCEPHIN [Concomitant]
     Indication: LYME DISEASE
     Dosage: DOSE UNIT:UNKNOWN
     Route: 042
     Dates: start: 20071201
  3. ZITHROMAX [Concomitant]
     Indication: LYME DISEASE
     Dosage: DOSE UNIT:UNKNOWN
     Route: 042
     Dates: start: 20071201
  4. LEVAQUIN [Concomitant]
     Indication: LYME DISEASE
     Dosage: DOSE UNIT:UNKNOWN
     Route: 042
     Dates: start: 20071201

REACTIONS (5)
  - CHEST PAIN [None]
  - DIARRHOEA [None]
  - EXOSTOSIS [None]
  - FAECES DISCOLOURED [None]
  - INSOMNIA [None]
